FAERS Safety Report 9258830 (Version 1)
Quarter: 2013Q2

REPORT INFORMATION
  Report Type: Spontaneous
  Country: IT (occurrence: IT)
  Receive Date: 20130426
  Receipt Date: 20130426
  Transmission Date: 20140414
  Serious: Yes (Hospitalization)
  Sender: FDA-Public Use
  Company Number: IT-TEVA-400413ISR

PATIENT
  Age: 53 Year
  Sex: Male

DRUGS (5)
  1. OLANZAPINA TEVA [Suspect]
     Indication: MOOD ALTERED
     Dosage: 30 MILLIGRAM DAILY; ORODISPERSIBLE TABLETS
     Route: 048
     Dates: start: 20130201, end: 20130417
  2. ENTUMIN [Concomitant]
     Dosage: 30 GTT DAILY;
     Dates: start: 20130406, end: 20130409
  3. DEPAKIN [Concomitant]
     Dosage: 500 MILLIGRAM DAILY; MODIFIED RELEASE GRANULATE
     Dates: start: 20130406, end: 20130409
  4. TAVOR [Concomitant]
     Dosage: 2.5 MILLIGRAM DAILY;
     Dates: start: 20130406, end: 20130409
  5. HALDOL [Concomitant]
     Dates: end: 20130406

REACTIONS (12)
  - Delusional disorder, persecutory type [Not Recovered/Not Resolved]
  - Irritability [Not Recovered/Not Resolved]
  - Insomnia [Not Recovered/Not Resolved]
  - Psychomotor hyperactivity [Not Recovered/Not Resolved]
  - Disinhibition [Not Recovered/Not Resolved]
  - Logorrhoea [Not Recovered/Not Resolved]
  - Tachyphrenia [Not Recovered/Not Resolved]
  - Dysphoria [Not Recovered/Not Resolved]
  - Euphoric mood [Not Recovered/Not Resolved]
  - Aggression [Not Recovered/Not Resolved]
  - Abnormal behaviour [Not Recovered/Not Resolved]
  - Drug ineffective [Not Recovered/Not Resolved]
